FAERS Safety Report 8463960-8 (Version None)
Quarter: 2012Q2

REPORT INFORMATION
  Report Type: 
  Country: None (occurrence: None)
  Receive Date: 20120625
  Receipt Date: 20120620
  Transmission Date: 20120825
  Serious: No
  Sender: FDA-Public Use
  Company Number: US-ASTRAZENECA-2012SE41605

PATIENT
  Age: 66 Year
  Sex: Female
  Weight: 99.8 kg

DRUGS (10)
  1. NEXIUM [Suspect]
     Indication: GASTROOESOPHAGEAL REFLUX DISEASE
     Route: 048
  2. INDERAL [Concomitant]
     Indication: BLOOD PRESSURE
  3. NEXIUM [Suspect]
     Route: 048
  4. BACTRIM [Concomitant]
     Indication: URINARY TRACT INFECTION
  5. NEXIUM [Suspect]
     Route: 048
  6. ATIVAN [Concomitant]
     Indication: PANIC ATTACK
  7. NEXIUM [Suspect]
     Route: 048
  8. ZOFRAN [Concomitant]
     Indication: HYPERCHLORHYDRIA
  9. ENALAPRIL MALEATE [Concomitant]
     Indication: ARRHYTHMIA
  10. ATIVAN [Concomitant]
     Indication: STRESS

REACTIONS (4)
  - COUGH [None]
  - INTENTIONAL DRUG MISUSE [None]
  - DRUG EFFECT DECREASED [None]
  - VOMITING [None]
